FAERS Safety Report 6943570-1 (Version None)
Quarter: 2010Q3

REPORT INFORMATION
  Report Type: 
  Country: None (occurrence: None)
  Receive Date: 20100826
  Receipt Date: 20100812
  Transmission Date: 20110219
  Serious: Yes (Hospitalization)
  Sender: FDA-Public Use
  Company Number: DE-MYLANLABS-2010S1014621

PATIENT
  Age: 43 Year
  Sex: Female

DRUGS (4)
  1. VENLAFAXINE [Suspect]
     Indication: ACCIDENTAL OVERDOSE
     Route: 065
  2. VENLAFAXINE [Suspect]
     Indication: DEPRESSION
     Route: 065
  3. VENLAFAXINE [Suspect]
     Route: 065
  4. VENLAFAXINE [Suspect]
     Route: 065

REACTIONS (2)
  - ACCIDENTAL OVERDOSE [None]
  - STRESS CARDIOMYOPATHY [None]
